FAERS Safety Report 11795992 (Version 1)
Quarter: 2015Q4

REPORT INFORMATION
  Report Type: Spontaneous
  Country: ES (occurrence: ES)
  Receive Date: 20151203
  Receipt Date: 20151203
  Transmission Date: 20160305
  Serious: Yes (Life-Threatening)
  Sender: FDA-Public Use
  Company Number: ES-HOSPIRA-3097871

PATIENT
  Age: 34 Year
  Sex: Female
  Weight: 59 kg

DRUGS (6)
  1. MIRTAZAPINE. [Concomitant]
     Active Substance: MIRTAZAPINE
     Indication: PSYCHOMOTOR HYPERACTIVITY
     Dosage: VIA NASOGASTRIC TUBE
     Route: 050
     Dates: start: 20150907, end: 20150924
  2. ALPRAZOLAM. [Concomitant]
     Active Substance: ALPRAZOLAM
     Indication: PSYCHOMOTOR HYPERACTIVITY
     Dosage: TOTAL DOSE: 1.5 MG
     Route: 048
     Dates: start: 20150907, end: 20150910
  3. VALPROIC ACID. [Concomitant]
     Active Substance: VALPROIC ACID
     Indication: MYOCLONUS
     Dosage: PER HOUR
     Route: 042
     Dates: start: 20150831, end: 20150916
  4. DEXDOR [Suspect]
     Active Substance: DEXMEDETOMIDINE HYDROCHLORIDE
     Indication: PSYCHOMOTOR HYPERACTIVITY
     Dosage: STRENGTH: 100 MCG/ML
     Route: 042
     Dates: start: 20150907, end: 20150908
  5. ENOXAPARIN [Concomitant]
     Active Substance: ENOXAPARIN
     Indication: THROMBOPHLEBITIS
     Route: 058
     Dates: start: 20150904, end: 20150915
  6. MORPHINE [Concomitant]
     Active Substance: MORPHINE
     Indication: SEDATION
     Route: 042
     Dates: start: 20150831, end: 20150918

REACTIONS (4)
  - Accidental overdose [Recovered/Resolved]
  - Product preparation error [Recovered/Resolved]
  - Hypotension [Recovered/Resolved]
  - Heart rate decreased [Recovered/Resolved]

NARRATIVE: CASE EVENT DATE: 20150908
